FAERS Safety Report 4946928-5 (Version None)
Quarter: 2006Q1

REPORT INFORMATION
  Report Type: 
  Country: None (occurrence: None)
  Receive Date: 20060317
  Receipt Date: 20060217
  Transmission Date: 20060701
  Serious: Yes (Other)
  Sender: FDA-Public Use
  Company Number: LV-JNJFOC-20060303880

PATIENT
  Sex: Female
  Weight: 62 kg

DRUGS (3)
  1. TOPAMAX [Suspect]
     Indication: EPILEPSY
     Route: 065
  2. TRILEPTAL [Suspect]
     Indication: EPILEPSY
     Route: 065
  3. NEURONTIN [Suspect]
     Indication: EPILEPSY
     Route: 065

REACTIONS (3)
  - ABORTION MISSED [None]
  - DRUG EXPOSURE DURING PREGNANCY [None]
  - PREGNANCY [None]
